FAERS Safety Report 23889495 (Version 1)
Quarter: 2024Q2

REPORT INFORMATION
  Report Type: Spontaneous
  Country: IT (occurrence: IT)
  Receive Date: 20240523
  Receipt Date: 20240523
  Transmission Date: 20240716
  Serious: Yes (Hospitalization)
  Sender: FDA-Public Use
  Company Number: IT-VALIDUS PHARMACEUTICALS LLC-IT-VDP-2024-019256

PATIENT

DRUGS (2)
  1. LASIX [Suspect]
     Active Substance: FUROSEMIDE
     Indication: Accidental overdose
     Dosage: 125 MG, TOTAL
     Route: 048
     Dates: start: 20240428, end: 20240428
  2. LASIX [Suspect]
     Active Substance: FUROSEMIDE
     Indication: Accidental exposure to product by child

REACTIONS (3)
  - Polyuria [Recovering/Resolving]
  - Accidental exposure to product by child [Unknown]
  - Accidental overdose [Unknown]

NARRATIVE: CASE EVENT DATE: 20240429
